FAERS Safety Report 6299635-3 (Version None)
Quarter: 2009Q3

REPORT INFORMATION
  Report Type: 
  Country: None (occurrence: None)
  Receive Date: 20090805
  Receipt Date: 20090805
  Transmission Date: 20100115
  Serious: Yes (Disabling)
  Sender: FDA-Public Use
  Company Number: None

PATIENT
  Age: 53 Year
  Sex: Female
  Weight: 74.8435 kg

DRUGS (1)
  1. DOCETAXEL [Suspect]
     Indication: BREAST CANCER
     Dosage: 130MG IV DRIP
     Route: 041
     Dates: start: 20090729, end: 20090729

REACTIONS (2)
  - BACK PAIN [None]
  - HYPOAESTHESIA FACIAL [None]
